FAERS Safety Report 17740187 (Version 1)
Quarter: 2020Q2

REPORT INFORMATION
  Report Type: Spontaneous
  Country: US (occurrence: US)
  Receive Date: 20200504
  Receipt Date: 20200504
  Transmission Date: 20200714
  Serious: No
  Sender: FDA-Public Use
  Company Number: US-PFIZER INC-2020176469

PATIENT
  Age: 63 Year
  Sex: Female

DRUGS (1)
  1. XELJANZ XR [Suspect]
     Active Substance: TOFACITINIB CITRATE
     Dosage: 11 MG, DAILY
     Route: 048
     Dates: start: 20190717

REACTIONS (7)
  - Eye irritation [Unknown]
  - Diarrhoea [Unknown]
  - Arthralgia [Unknown]
  - Joint stiffness [Unknown]
  - Tenderness [Unknown]
  - Fatigue [Unknown]
  - Joint swelling [Unknown]
